FAERS Safety Report 8270698-9 (Version None)
Quarter: 2012Q2

REPORT INFORMATION
  Report Type: 
  Country: None (occurrence: None)
  Receive Date: 20120410
  Receipt Date: 20120403
  Transmission Date: 20120825
  Serious: Yes (Death, Other)
  Sender: FDA-Public Use
  Company Number: US-ELI_LILLY_AND_COMPANY-US201204001136

PATIENT
  Age: 51 Year
  Sex: Female

DRUGS (4)
  1. CARBOPLATIN [Concomitant]
     Indication: NON-SMALL CELL LUNG CANCER
     Dosage: 4 CYCLES
     Dates: start: 20080701
  2. ALIMTA [Suspect]
     Dosage: UNK
     Dates: start: 20100301, end: 20101101
  3. TARCEVA [Concomitant]
     Indication: NON-SMALL CELL LUNG CANCER
     Dosage: UNK
     Dates: start: 20081001, end: 20100501
  4. ALIMTA [Suspect]
     Indication: NON-SMALL CELL LUNG CANCER
     Dosage: 4 CYCLES
     Dates: start: 20080701

REACTIONS (5)
  - DEATH [None]
  - NEOPLASM PROGRESSION [None]
  - PERICARDIAL EFFUSION [None]
  - METASTASES TO MENINGES [None]
  - CARDIAC TAMPONADE [None]
